FAERS Safety Report 21282821 (Version 1)
Quarter: 2022Q3

REPORT INFORMATION
  Report Type: Spontaneous
  Country: US (occurrence: US)
  Receive Date: 20220901
  Receipt Date: 20220901
  Transmission Date: 20221027
  Serious: Yes (Hospitalization)
  Sender: FDA-Public Use
  Company Number: US-FreseniusKabi-FK202211930

PATIENT
  Age: 59 Year
  Sex: Female

DRUGS (1)
  1. LIDOCAINE [Suspect]
     Active Substance: LIDOCAINE
     Indication: Spinal anaesthesia

REACTIONS (5)
  - Local anaesthetic systemic toxicity [Recovered/Resolved]
  - Hallucination [Recovered/Resolved]
  - Nystagmus [Recovered/Resolved]
  - Akathisia [Recovered/Resolved]
  - Dysarthria [Recovered/Resolved]
